FAERS Safety Report 16155144 (Version 2)
Quarter: 2019Q2

REPORT INFORMATION
  Report Type: Spontaneous
  Country: US (occurrence: US)
  Receive Date: 20190403
  Receipt Date: 20190404
  Transmission Date: 20190711
  Serious: Yes (Other)
  Sender: FDA-Public Use
  Company Number: US-CELGENEUS-USA-20190310839

PATIENT
  Age: 61 Year
  Sex: Male

DRUGS (1)
  1. OTEZLA [Suspect]
     Active Substance: APREMILAST
     Indication: PSORIASIS
     Route: 048
     Dates: start: 20190318

REACTIONS (3)
  - Glaucoma [Unknown]
  - Cataract [Unknown]
  - Nausea [Unknown]

NARRATIVE: CASE EVENT DATE: 20190322
